FAERS Safety Report 9616353 (Version 1)
Quarter: 2013Q4

REPORT INFORMATION
  Report Type: Spontaneous
  Country: US (occurrence: None)
  Receive Date: 20131010
  Receipt Date: 20131010
  Transmission Date: 20140711
  Serious: Yes (Life-Threatening, Hospitalization)
  Sender: FDA-Public Use
  Company Number: None

PATIENT
  Age: 45 Year
  Sex: Male
  Weight: 92.9 kg

DRUGS (1)
  1. DOCETAXEL [Suspect]
     Indication: OROPHARYNGEAL SQUAMOUS CELL CARCINOMA
     Route: 042
     Dates: start: 20130916

REACTIONS (7)
  - Acute respiratory distress syndrome [None]
  - Unresponsive to stimuli [None]
  - Hypotension [None]
  - Respiratory acidosis [None]
  - Hypoxia [None]
  - Anuria [None]
  - Hyperkalaemia [None]
